FAERS Safety Report 7368443-4 (Version None)
Quarter: 2011Q1

REPORT INFORMATION
  Report Type: 
  Country: None (occurrence: None)
  Receive Date: 20110323
  Receipt Date: 20110224
  Transmission Date: 20110831
  Serious: No
  Sender: FDA-Public Use
  Company Number: US-B.I. PHARMACEUTICALS,INC./RIDGEFIELD-2011-BP-03025BP

PATIENT
  Age: 88 Year
  Sex: Female

DRUGS (2)
  1. PRADAXA [Suspect]
     Indication: ATRIAL FIBRILLATION
     Dosage: 300 MG
     Route: 048
     Dates: start: 20110121
  2. MEDICATIONS NOT FURTHER SPECIFIED [Concomitant]

REACTIONS (3)
  - WRIST FRACTURE [None]
  - THROAT IRRITATION [None]
  - DIZZINESS [None]
